FAERS Safety Report 6316812-3 (Version None)
Quarter: 2009Q3

REPORT INFORMATION
  Report Type: 
  Country: None (occurrence: None)
  Receive Date: 20090820
  Receipt Date: 20090807
  Transmission Date: 20100115
  Serious: Yes (Hospitalization, Disabling, Other)
  Sender: FDA-Public Use
  Company Number: US-ROCHE-428465

PATIENT
  Sex: Female
  Weight: 147 kg

DRUGS (3)
  1. ACCUTANE [Suspect]
     Route: 048
     Dates: start: 20010718, end: 20011201
  2. TYLENOL (CAPLET) [Concomitant]
     Indication: HEADACHE
  3. UNSPECIFIED ANTIBIOTICS [Concomitant]

REACTIONS (35)
  - ARTHRITIS [None]
  - BACK PAIN [None]
  - BRONCHOPNEUMONIA [None]
  - COLITIS [None]
  - COLITIS ULCERATIVE [None]
  - CROHN'S DISEASE [None]
  - DECREASED APPETITE [None]
  - DEHYDRATION [None]
  - DEPRESSION [None]
  - DERMATITIS ATOPIC [None]
  - DUODENAL ULCER [None]
  - DYSPEPSIA [None]
  - DYSPHAGIA [None]
  - ECZEMA NUMMULAR [None]
  - GASTRIC ULCER [None]
  - GASTRITIS [None]
  - GASTROINTESTINAL DISORDER [None]
  - GASTROOESOPHAGEAL REFLUX DISEASE [None]
  - GENERALISED ANXIETY DISORDER [None]
  - HEPATIC STEATOSIS [None]
  - INFLAMMATORY BOWEL DISEASE [None]
  - INSOMNIA [None]
  - INTESTINAL HAEMORRHAGE [None]
  - IRON DEFICIENCY ANAEMIA [None]
  - IRRITABLE BOWEL SYNDROME [None]
  - LIVER FUNCTION TEST ABNORMAL [None]
  - MEGACOLON [None]
  - MICROCYTIC ANAEMIA [None]
  - OESOPHAGEAL ULCER [None]
  - PNEUMONIA [None]
  - PSEUDOPOLYP [None]
  - SUPRAVENTRICULAR TACHYCARDIA [None]
  - THROMBOCYTOPENIA [None]
  - VENTRICULAR EXTRASYSTOLES [None]
  - WEIGHT INCREASED [None]
